FAERS Safety Report 9310485 (Version 1)
Quarter: 2013Q2

REPORT INFORMATION
  Report Type: Spontaneous
  Country: US (occurrence: US)
  Receive Date: 20130527
  Receipt Date: 20130527
  Transmission Date: 20140414
  Serious: No
  Sender: FDA-Public Use
  Company Number: US-PFIZER INC-2013159806

PATIENT
  Age: 78 Year
  Sex: Male
  Weight: 83.45 kg

DRUGS (4)
  1. LYRICA [Suspect]
     Indication: SPINAL COLUMN STENOSIS
     Dosage: 75MG IN MORNING AND 150MG AT NIGHT  2X/DAY
     Dates: start: 201301
  2. LIPITOR [Concomitant]
     Indication: BLOOD CHOLESTEROL INCREASED
     Dosage: 40 MG/DAY
  3. SOMA [Concomitant]
     Indication: BACK PAIN
     Dosage: 350 MG, 2X/DAY
  4. NAPROXEN [Concomitant]
     Indication: MUSCLE RELAXANT THERAPY
     Dosage: 500 MG, 2X/DAY

REACTIONS (1)
  - Weight increased [Not Recovered/Not Resolved]
